FAERS Safety Report 5798830-7 (Version None)
Quarter: 2008Q2

REPORT INFORMATION
  Report Type: 
  Country: None (occurrence: None)
  Receive Date: 20080630
  Receipt Date: 20080616
  Transmission Date: 20081010
  Serious: Yes (Life-Threatening)
  Sender: FDA-Public Use
  Company Number: 001371

PATIENT
  Age: 26 Year
  Sex: Female

DRUGS (7)
  1. BUSULFEX [Suspect]
     Indication: STEM CELL TRANSPLANT
     Dosage: 15 ML, INTRAVENOUS; 20 ML, DAILY DOSE; INTRAVENOUS
     Route: 042
     Dates: start: 20071017, end: 20071017
  2. BUSULFEX [Suspect]
     Indication: STEM CELL TRANSPLANT
     Dosage: 15 ML, INTRAVENOUS; 20 ML, DAILY DOSE; INTRAVENOUS
     Route: 042
     Dates: start: 20071018, end: 20071021
  3. CYCLOPHOSPHAMIDE [Concomitant]
  4. CLONAZEPAM [Concomitant]
  5. LENOGRASTIM     (LENOGRASTIM) [Concomitant]
  6. METHOTREXATE [Concomitant]
  7. TACROLIMUS [Concomitant]

REACTIONS (1)
  - ACUTE MYELOID LEUKAEMIA RECURRENT [None]
